FAERS Safety Report 25715060 (Version 1)
Quarter: 2025Q3

REPORT INFORMATION
  Report Type: Spontaneous
  Country: US (occurrence: US)
  Receive Date: 20250822
  Receipt Date: 20250822
  Transmission Date: 20251021
  Serious: Yes (Other)
  Sender: MYLAN
  Company Number: US-MYLANLABS-2025M1070049

PATIENT
  Age: 28 Year
  Sex: Female
  Weight: 50.3 kg

DRUGS (28)
  1. TACROLIMUS [Suspect]
     Active Substance: TACROLIMUS
     Indication: Prophylaxis against transplant rejection
  2. TACROLIMUS [Suspect]
     Active Substance: TACROLIMUS
  3. TACROLIMUS [Suspect]
     Active Substance: TACROLIMUS
     Route: 060
  4. TACROLIMUS [Suspect]
     Active Substance: TACROLIMUS
     Route: 060
  5. TACROLIMUS [Suspect]
     Active Substance: TACROLIMUS
  6. TACROLIMUS [Suspect]
     Active Substance: TACROLIMUS
  7. TACROLIMUS [Suspect]
     Active Substance: TACROLIMUS
     Route: 060
  8. TACROLIMUS [Suspect]
     Active Substance: TACROLIMUS
     Route: 060
  9. TACROLIMUS [Suspect]
     Active Substance: TACROLIMUS
  10. TACROLIMUS [Suspect]
     Active Substance: TACROLIMUS
     Route: 060
  11. TACROLIMUS [Suspect]
     Active Substance: TACROLIMUS
  12. TACROLIMUS [Suspect]
     Active Substance: TACROLIMUS
     Route: 060
  13. TACROLIMUS [Suspect]
     Active Substance: TACROLIMUS
  14. TACROLIMUS [Suspect]
     Active Substance: TACROLIMUS
  15. TACROLIMUS [Suspect]
     Active Substance: TACROLIMUS
     Route: 060
  16. TACROLIMUS [Suspect]
     Active Substance: TACROLIMUS
     Route: 060
  17. TACROLIMUS [Suspect]
     Active Substance: TACROLIMUS
  18. TACROLIMUS [Suspect]
     Active Substance: TACROLIMUS
  19. TACROLIMUS [Suspect]
     Active Substance: TACROLIMUS
     Route: 060
  20. TACROLIMUS [Suspect]
     Active Substance: TACROLIMUS
     Route: 060
  21. TACROLIMUS [Suspect]
     Active Substance: TACROLIMUS
  22. TACROLIMUS [Suspect]
     Active Substance: TACROLIMUS
  23. TACROLIMUS [Suspect]
     Active Substance: TACROLIMUS
     Route: 060
  24. TACROLIMUS [Suspect]
     Active Substance: TACROLIMUS
     Route: 060
  25. TACROLIMUS [Suspect]
     Active Substance: TACROLIMUS
  26. TACROLIMUS [Suspect]
     Active Substance: TACROLIMUS
  27. TACROLIMUS [Suspect]
     Active Substance: TACROLIMUS
     Route: 060
  28. TACROLIMUS [Suspect]
     Active Substance: TACROLIMUS
     Route: 060

REACTIONS (1)
  - Drug ineffective [Unknown]
